FAERS Safety Report 12225763 (Version 1)
Quarter: 2016Q1

REPORT INFORMATION
  Report Type: Spontaneous
  Country: FR (occurrence: FR)
  Receive Date: 20160331
  Receipt Date: 20160331
  Transmission Date: 20160526
  Serious: Yes (Other)
  Sender: FDA-Public Use
  Company Number: FR-PFIZER INC-2016178278

PATIENT
  Age: 2 Year
  Sex: Female

DRUGS (3)
  1. CLAMOXYL /00249601/ [Suspect]
     Active Substance: AMOXICILLIN
     Indication: PYREXIA
     Dosage: UNK
     Route: 048
     Dates: start: 20150926, end: 20150927
  2. ADVIL [Suspect]
     Active Substance: IBUPROFEN
     Indication: PYREXIA
     Dosage: UNK
     Route: 048
     Dates: start: 20150925, end: 20150927
  3. DOLIPRANE [Concomitant]
     Active Substance: ACETAMINOPHEN
     Indication: PYREXIA
     Dosage: UNK
     Dates: start: 20150925

REACTIONS (7)
  - Dysphonia [Unknown]
  - Pharyngeal inflammation [Unknown]
  - Eyelid oedema [Recovered/Resolved]
  - Rash [Unknown]
  - Ear pruritus [Unknown]
  - Rash [Recovered/Resolved]
  - Localised oedema [Unknown]

NARRATIVE: CASE EVENT DATE: 20150927
